FAERS Safety Report 14763618 (Version 1)
Quarter: 2018Q2

REPORT INFORMATION
  Report Type: Spontaneous
  Country: US (occurrence: US)
  Receive Date: 20180416
  Receipt Date: 20180416
  Transmission Date: 20180711
  Serious: Yes (Hospitalization)
  Sender: FDA-Public Use
  Company Number: US-JNJFOC-20180414266

PATIENT
  Age: 44 Year
  Sex: Male

DRUGS (2)
  1. INVOKAMET [Suspect]
     Active Substance: CANAGLIFLOZIN\METFORMIN HYDROCHLORIDE
     Indication: PRODUCT USED FOR UNKNOWN INDICATION
     Dosage: 150/1000 MG
     Route: 048
     Dates: start: 20140419, end: 20180302
  2. INVOKANA [Suspect]
     Active Substance: CANAGLIFLOZIN
     Indication: PRODUCT USED FOR UNKNOWN INDICATION
     Route: 048
     Dates: start: 20140419, end: 20180302

REACTIONS (5)
  - Osteomyelitis chronic [Unknown]
  - Diabetic neuropathy [Unknown]
  - Foot amputation [Unknown]
  - Arthritis bacterial [Unknown]
  - Diabetic ulcer [Unknown]

NARRATIVE: CASE EVENT DATE: 201406
